FAERS Safety Report 11468915 (Version 3)
Quarter: 2015Q3

REPORT INFORMATION
  Report Type: Spontaneous
  Country: US (occurrence: US)
  Receive Date: 20150908
  Receipt Date: 20150928
  Transmission Date: 20151125
  Serious: No
  Sender: FDA-Public Use
  Company Number: US-GLAXOSMITHKLINE-US2015GSK104202

PATIENT
  Sex: Male

DRUGS (2)
  1. VOTRIENT [Suspect]
     Active Substance: PAZOPANIB HYDROCHLORIDE
     Indication: RENAL CANCER
  2. VOTRIENT [Suspect]
     Active Substance: PAZOPANIB HYDROCHLORIDE
     Indication: MALIGNANT NEOPLASM OF RENAL PELVIS
     Dosage: 800 MG, QD
     Dates: start: 20150701

REACTIONS (8)
  - Nausea [Unknown]
  - Gingival bleeding [Unknown]
  - Decreased appetite [Unknown]
  - Mouth haemorrhage [Unknown]
  - Eye discharge [Unknown]
  - Arthralgia [Unknown]
  - Blood urine present [Recovered/Resolved]
  - Weight decreased [Unknown]
